FAERS Safety Report 5993350-9 (Version None)
Quarter: 2008Q4

REPORT INFORMATION
  Report Type: 
  Country: None (occurrence: None)
  Receive Date: 20081209
  Receipt Date: 20071114
  Transmission Date: 20090506
  Serious: No
  Sender: FDA-Public Use
  Company Number: 07H-163-0313475-00

PATIENT
  Age: 31 Year
  Sex: Female
  Weight: 54.4316 kg

DRUGS (3)
  1. DEMEROL [Suspect]
     Indication: CHILLS
     Dosage: 12.5 MG, ONCE, INTRAVENOUS
     Route: 042
     Dates: start: 20071101, end: 20071101
  2. FENTANYL-100 [Concomitant]
  3. ANCEF [Concomitant]

REACTIONS (1)
  - INJECTION SITE URTICARIA [None]
